FAERS Safety Report 10461844 (Version 2)
Quarter: 2014Q4

REPORT INFORMATION
  Report Type: Spontaneous
  Country: US (occurrence: None)
  Receive Date: 20140916
  Receipt Date: 20141003
  Transmission Date: 20150528
  Serious: Yes (Disabling, Other)
  Sender: FDA-Public Use
  Company Number: 2014-20328

PATIENT
  Age: 86 Year
  Sex: Male

DRUGS (2)
  1. DORZOLAMIDE (DORZOLAMIDE) [Concomitant]
  2. EYLEA [Suspect]
     Active Substance: AFLIBERCEPT
     Indication: MACULAR DEGENERATION
     Route: 031
     Dates: start: 20140618, end: 20140618

REACTIONS (2)
  - Blindness [None]
  - Endophthalmitis [None]

NARRATIVE: CASE EVENT DATE: 20140724
